FAERS Safety Report 7380127-5 (Version None)
Quarter: 2011Q1

REPORT INFORMATION
  Report Type: 
  Country: None (occurrence: None)
  Receive Date: 20110329
  Receipt Date: 20100609
  Transmission Date: 20110831
  Serious: No
  Sender: FDA-Public Use
  Company Number: US-MYLANLABS-2010S1010358

PATIENT
  Age: 49 Year
  Sex: Female
  Weight: 58.97 kg

DRUGS (1)
  1. ESTRADIOL [Suspect]
     Indication: HORMONE REPLACEMENT THERAPY
     Dosage: REMOVED AFER 90 MINUTES.
     Route: 062
     Dates: start: 20100608, end: 20100608

REACTIONS (2)
  - URTICARIA [None]
  - PRURITUS GENERALISED [None]
